FAERS Safety Report 5480265-8 (Version None)
Quarter: 2007Q4

REPORT INFORMATION
  Report Type: 
  Country: None (occurrence: None)
  Receive Date: 20071009
  Receipt Date: 20071004
  Transmission Date: 20080405
  Serious: Yes (Hospitalization)
  Sender: FDA-Public Use
  Company Number: US-BRISTOL-MYERS SQUIBB COMPANY-13876875

PATIENT
  Age: 73 Year
  Sex: Female
  Weight: 80 kg

DRUGS (12)
  1. CYCLOPHOSPHAMIDE [Suspect]
     Indication: DIFFUSE LARGE B-CELL LYMPHOMA
     Dosage: LAST DOSE RECEIVED ON 17-SEP-2007.
     Route: 042
     Dates: start: 20070724, end: 20070724
  2. DOXORUBICIN HCL [Suspect]
     Indication: DIFFUSE LARGE B-CELL LYMPHOMA
     Dosage: LAST DOSE RECEIVED ON 17-SEP-2007.
     Route: 042
     Dates: start: 20070724, end: 20070724
  3. ENZASTAURIN [Suspect]
     Indication: DIFFUSE LARGE B-CELL LYMPHOMA
     Dosage: INITIAL DOSE-1125MG(1/D) PO 25JUL07; LAST DOSE 500 MG(1/D) 14-SEP-07.
     Route: 048
     Dates: start: 20070726
  4. VINCRISTINE [Suspect]
     Indication: DIFFUSE LARGE B-CELL LYMPHOMA
     Dosage: LAST DOSE ADMINISTERED ON 17-SEP-2007.
     Route: 042
     Dates: start: 20070724, end: 20070724
  5. PREDNISONE [Suspect]
     Indication: DIFFUSE LARGE B-CELL LYMPHOMA
     Dosage: LAST DOSE ADMINISTERED ON 17-SEP-2007.
     Route: 048
     Dates: start: 20070724
  6. RITUXIMAB [Suspect]
     Indication: DIFFUSE LARGE B-CELL LYMPHOMA
     Dosage: LAST DOSE ADMINISTERED ON 17-SEP-2007.
     Route: 042
     Dates: start: 20070724, end: 20070724
  7. ATACAND [Concomitant]
  8. DARVOCET [Concomitant]
  9. SYNTHROID [Concomitant]
  10. MULTI-VITAMIN [Concomitant]
  11. IBUPROFEN [Concomitant]
  12. TYLENOL (CAPLET) [Concomitant]

REACTIONS (2)
  - FEBRILE NEUTROPENIA [None]
  - NEUTROPENIC SEPSIS [None]
